FAERS Safety Report 5146999-X (Version None)
Quarter: 2006Q4

REPORT INFORMATION
  Report Type: 
  Country: None (occurrence: None)
  Receive Date: 20061109
  Receipt Date: 20061101
  Transmission Date: 20070319
  Serious: Yes (Hospitalization)
  Sender: FDA-Public Use
  Company Number: US-JNJFOC-20060705386

PATIENT
  Sex: Female
  Weight: 119.75 kg

DRUGS (3)
  1. ORTHO EVRA [Suspect]
     Indication: CONTRACEPTION
     Route: 062
  2. RITALIN [Concomitant]
     Indication: ATTENTION DEFICIT/HYPERACTIVITY DISORDER
  3. TYLENOL W/ CODEINE NO. 3 [Concomitant]
     Indication: HEADACHE

REACTIONS (11)
  - BLOOD HOMOCYSTEINE INCREASED [None]
  - CONVULSION [None]
  - DEEP VEIN THROMBOSIS [None]
  - GENE MUTATION IDENTIFICATION TEST POSITIVE [None]
  - HEADACHE [None]
  - INTRACRANIAL VENOUS SINUS THROMBOSIS [None]
  - LABORATORY TEST ABNORMAL [None]
  - OEDEMA [None]
  - PNEUMONIA ASPIRATION [None]
  - SINUS CONGESTION [None]
  - SUBARACHNOID HAEMORRHAGE [None]
